FAERS Safety Report 9068380 (Version 1)
Quarter: 2013Q1

REPORT INFORMATION
  Report Type: Spontaneous
  Country: US (occurrence: None)
  Receive Date: 20130212
  Receipt Date: 20130212
  Transmission Date: 20140127
  Serious: No
  Sender: FDA-Public Use
  Company Number: None

PATIENT
  Age: 20 Month
  Sex: Male
  Weight: 11.79 kg

DRUGS (1)
  1. TAMIFLU [Suspect]
     Indication: INFLUENZA
     Dosage: 5 ML  2 DAILY  PO
     Route: 048
     Dates: start: 20120209, end: 20120210

REACTIONS (2)
  - Muscle spasms [None]
  - Epistaxis [None]
